FAERS Safety Report 12830453 (Version 2)
Quarter: 2016Q4

REPORT INFORMATION
  Report Type: Spontaneous
  Country: US (occurrence: US)
  Receive Date: 20161007
  Receipt Date: 20161212
  Transmission Date: 20170207
  Serious: Yes (Other)
  Sender: FDA-Public Use
  Company Number: US-SA-2016SA134150

PATIENT
  Age: 27 Year
  Sex: Male

DRUGS (2)
  1. AUBAGIO [Suspect]
     Active Substance: TERIFLUNOMIDE
     Indication: MULTIPLE SCLEROSIS
     Route: 048
  2. NUVIGIL [Concomitant]
     Active Substance: ARMODAFINIL

REACTIONS (10)
  - Depression [Unknown]
  - Depressed mood [Unknown]
  - Diarrhoea [Unknown]
  - Balance disorder [Unknown]
  - Abdominal discomfort [Unknown]
  - Decreased interest [Unknown]
  - Multiple sclerosis relapse [Unknown]
  - Optic neuritis [Unknown]
  - Dehydration [Unknown]
  - Product use issue [Unknown]
